FAERS Safety Report 13950680 (Version 1)
Quarter: 2017Q3

REPORT INFORMATION
  Report Type: Spontaneous
  Country: US (occurrence: US)
  Receive Date: 20170908
  Receipt Date: 20170908
  Transmission Date: 20171128
  Serious: Yes (Death, Hospitalization)
  Sender: FDA-Public Use
  Company Number: US-ROCHE-1134267

PATIENT
  Age: 65 Year
  Sex: Male

DRUGS (5)
  1. RITUXAN [Suspect]
     Active Substance: RITUXIMAB
     Indication: CHRONIC KIDNEY DISEASE
     Route: 042
     Dates: start: 20060214
  2. RITUXAN [Suspect]
     Active Substance: RITUXIMAB
     Indication: CHRONIC KIDNEY DISEASE
     Route: 042
     Dates: start: 20060322
  3. RITUXAN [Suspect]
     Active Substance: RITUXIMAB
     Route: 042
     Dates: end: 20060329
  4. PREDNISONE. [Concomitant]
     Active Substance: PREDNISONE
     Route: 065
     Dates: start: 200602
  5. RITUXAN [Suspect]
     Active Substance: RITUXIMAB
     Indication: OFF LABEL USE
     Route: 042
     Dates: start: 20060301

REACTIONS (4)
  - Diarrhoea [Unknown]
  - Fatigue [Unknown]
  - Sepsis [Fatal]
  - Dyspnoea [Unknown]

NARRATIVE: CASE EVENT DATE: 20060424
